FAERS Safety Report 10032601 (Version 3)
Quarter: 2014Q3

REPORT INFORMATION
  Report Type: Spontaneous
  Country: US (occurrence: US)
  Receive Date: 20140324
  Receipt Date: 20140806
  Transmission Date: 20150326
  Serious: Yes (Other)
  Sender: FDA-Public Use
  Company Number: US-GLAXOSMITHKLINE-A1061941A

PATIENT
  Age: 61 Year
  Sex: Male
  Weight: 88 kg

DRUGS (9)
  1. TAMSULOSIN [Concomitant]
     Active Substance: TAMSULOSIN
  2. CHEMOTHERAPY [Concomitant]
     Active Substance: UNSPECIFIED INGREDIENT
  3. WARFARIN [Concomitant]
     Active Substance: WARFARIN
  4. OXYCONTIN [Concomitant]
     Active Substance: OXYCODONE HYDROCHLORIDE
  5. OXYCODONE [Concomitant]
     Active Substance: OXYCODONE
  6. OMEPRAZOLE. [Concomitant]
     Active Substance: OMEPRAZOLE
  7. PRAVASTATIN [Concomitant]
     Active Substance: PRAVASTATIN\PRAVASTATIN SODIUM
  8. LABETALOL [Concomitant]
     Active Substance: LABETALOL\LABETALOL HYDROCHLORIDE
  9. VOTRIENT [Suspect]
     Active Substance: PAZOPANIB HYDROCHLORIDE
     Indication: SARCOMA METASTATIC
     Dosage: 200MG UNKNOWN
     Route: 065
     Dates: start: 20131113

REACTIONS (20)
  - Abdominal pain upper [Recovered/Resolved]
  - Enteritis infectious [Recovered/Resolved]
  - Hiatus hernia [Unknown]
  - Diarrhoea [Unknown]
  - Arteriosclerosis [Unknown]
  - Fatigue [Recovered/Resolved]
  - Gastrointestinal pain [Recovered/Resolved]
  - Clostridium difficile infection [Unknown]
  - Prostatomegaly [Unknown]
  - Exostosis [Unknown]
  - Metastatic neoplasm [Unknown]
  - Adrenal adenoma [Unknown]
  - Arteriosclerosis coronary artery [Unknown]
  - Benign neoplasm of adrenal gland [Unknown]
  - Dyspnoea [Recovered/Resolved]
  - Renal disorder [Unknown]
  - Pulmonary mass [Unknown]
  - Hepatic cyst [Unknown]
  - Osteosclerosis [Unknown]
  - Scoliosis [Unknown]

NARRATIVE: CASE EVENT DATE: 2014
